FAERS Safety Report 13693389 (Version 1)
Quarter: 2017Q2

REPORT INFORMATION
  Report Type: Spontaneous
  Country: IT (occurrence: IT)
  Receive Date: 20170627
  Receipt Date: 20170627
  Transmission Date: 20170830
  Serious: Yes (Other)
  Sender: FDA-Public Use
  Company Number: IT-ROCHE-1955378

PATIENT
  Age: 75 Year
  Sex: Female

DRUGS (1)
  1. XOLAIR [Suspect]
     Active Substance: OMALIZUMAB
     Indication: CHRONIC SPONTANEOUS URTICARIA
     Dosage: 300 MG, QMO (ONCE A MONTH)
     Route: 058
     Dates: start: 20170301, end: 20170520

REACTIONS (6)
  - Tongue oedema [Unknown]
  - Lip oedema [Unknown]
  - Pruritus [Unknown]
  - Urticaria [Recovered/Resolved]
  - Erythema [Unknown]
  - Angioedema [Recovered/Resolved]

NARRATIVE: CASE EVENT DATE: 20170331
